FAERS Safety Report 16633380 (Version 2)
Quarter: 2020Q2

REPORT INFORMATION
  Report Type: Spontaneous
  Country: NL (occurrence: NL)
  Receive Date: 20190725
  Receipt Date: 20200625
  Transmission Date: 20200713
  Serious: Yes (Hospitalization, Other)
  Sender: FDA-Public Use
  Company Number: PHHY2019NL171293

PATIENT
  Age: 56 Year
  Sex: Female

DRUGS (14)
  1. OXAZEPAM. [Interacting]
     Active Substance: OXAZEPAM
     Indication: PRODUCT USED FOR UNKNOWN INDICATION
     Dosage: 90 MG, 80 TO 90 MG
     Route: 065
  2. OXAZEPAM. [Interacting]
     Active Substance: OXAZEPAM
     Dosage: MORE THAN 10 YEARS
     Route: 065
  3. TRACYDAL [Interacting]
     Active Substance: TRANYLCYPROMINE SULFATE
     Indication: ANXIETY
     Dosage: 40 MG, 40MG OR 80 MG
     Route: 065
  4. BRILIQUE [Concomitant]
     Active Substance: TICAGRELOR
     Indication: PRODUCT USED FOR UNKNOWN INDICATION
     Dosage: 90 MG, BID
     Route: 065
     Dates: start: 201705
  5. PANTOPRAZOLE [Concomitant]
     Active Substance: PANTOPRAZOLE
     Indication: PRODUCT USED FOR UNKNOWN INDICATION
     Dosage: 40 MG, QD
     Route: 065
     Dates: start: 201705
  6. OXAZEPAM. [Interacting]
     Active Substance: OXAZEPAM
     Dosage: 40 MG, QD
     Route: 065
     Dates: start: 20170501
  7. SIMVASTATIN. [Interacting]
     Active Substance: SIMVASTATIN
     Indication: PRODUCT USED FOR UNKNOWN INDICATION
     Dosage: 40 MG, QD
     Route: 065
     Dates: start: 201705
  8. TRACYDAL [Interacting]
     Active Substance: TRANYLCYPROMINE SULFATE
     Indication: DEPRESSION
     Dosage: 50 MG, 20-10-10-10 MG
     Route: 065
     Dates: start: 2016
  9. FOSINOPRIL SODIUM. [Suspect]
     Active Substance: FOSINOPRIL SODIUM
     Indication: PRODUCT USED FOR UNKNOWN INDICATION
     Dosage: 10 MG, QD
     Route: 065
     Dates: start: 201705
  10. QUETIAPINE. [Suspect]
     Active Substance: QUETIAPINE
     Indication: SLEEP DISORDER
     Dosage: 25 MG, QD
     Route: 065
     Dates: start: 201705
  11. SYNAPAUSE [Concomitant]
     Indication: PRODUCT USED FOR UNKNOWN INDICATION
     Dosage: 1 MG, QD
     Route: 065
  12. ACETYLSALICYLIC ACID [Interacting]
     Active Substance: ASPIRIN
     Indication: PRODUCT USED FOR UNKNOWN INDICATION
     Dosage: 80 MG, QD
     Route: 065
     Dates: start: 201705
  13. OXAZEPAM. [Interacting]
     Active Substance: OXAZEPAM
     Dosage: 40 MG, QD
     Route: 065
     Dates: start: 201705
  14. LABETALOL [Concomitant]
     Active Substance: LABETALOL\LABETALOL HYDROCHLORIDE
     Indication: HYPERTENSION
     Dosage: 1 DF, PRN
     Route: 065

REACTIONS (16)
  - Left ventricular dysfunction [Not Recovered/Not Resolved]
  - Myocardial infarction [Unknown]
  - Bradycardia [Unknown]
  - Therapeutic response unexpected [Unknown]
  - Sleep disorder [Recovering/Resolving]
  - Alopecia [Not Recovered/Not Resolved]
  - Orthostatic hypotension [Unknown]
  - Blood pressure diastolic increased [Unknown]
  - Intercepted medication error [Unknown]
  - Hypertensive crisis [Unknown]
  - Suicidal ideation [Recovering/Resolving]
  - Potentiating drug interaction [Unknown]
  - Insomnia [Not Recovered/Not Resolved]
  - Contraindicated product administered [Unknown]
  - Weight increased [Not Recovered/Not Resolved]
  - Depression [Recovering/Resolving]

NARRATIVE: CASE EVENT DATE: 2017
